FAERS Safety Report 19893869 (Version 1)
Quarter: 2021Q3

REPORT INFORMATION
  Report Type: Spontaneous
  Country: US (occurrence: US)
  Receive Date: 20210929
  Receipt Date: 20210929
  Transmission Date: 20211014
  Serious: Yes (Other)
  Sender: FDA-Public Use
  Company Number: US-AMGEN-USASP2021147582

PATIENT
  Age: 68 Year
  Sex: Female

DRUGS (14)
  1. METFORMIN ER [Concomitant]
     Active Substance: METFORMIN HYDROCHLORIDE
  2. SMZ?TMP [Concomitant]
     Active Substance: SULFAMETHOXAZOLE\TRIMETHOPRIM
  3. SUMATRIPTAN. [Concomitant]
     Active Substance: SUMATRIPTAN
  4. OXYCODONE/APAP [Concomitant]
     Active Substance: ACETAMINOPHEN\OXYCODONE HYDROCHLORIDE
  5. DULOXETINE. [Concomitant]
     Active Substance: DULOXETINE
  6. CHOLESTYRAMIN [Concomitant]
     Active Substance: CHOLESTYRAMINE
  7. HYDROCORTISON [HYDROCORTISONE] [Concomitant]
  8. METHSCOPOLAMINE BROMIDE. [Concomitant]
     Active Substance: METHSCOPOLAMINE BROMIDE
  9. COLESTIPOL [Concomitant]
     Active Substance: COLESTIPOL
  10. OTEZLA [Suspect]
     Active Substance: APREMILAST
     Indication: PSORIASIS
     Dosage: 30 MILLIGRAM, BID
     Route: 048
     Dates: start: 20210714
  11. GABAPENTIN. [Concomitant]
     Active Substance: GABAPENTIN
  12. TECFIDERA [Concomitant]
     Active Substance: DIMETHYL FUMARATE
  13. ATORVASTATIN [Concomitant]
     Active Substance: ATORVASTATIN
  14. CITALOPRAM [Concomitant]
     Active Substance: CITALOPRAM HYDROBROMIDE

REACTIONS (3)
  - Fatigue [Not Recovered/Not Resolved]
  - Spinal operation [Not Recovered/Not Resolved]
  - Mobility decreased [Not Recovered/Not Resolved]

NARRATIVE: CASE EVENT DATE: 2021
